FAERS Safety Report 4398460-8 (Version None)
Quarter: 2004Q3

REPORT INFORMATION
  Report Type: 
  Country: None (occurrence: None)
  Receive Date: 20040713
  Receipt Date: 20040630
  Transmission Date: 20050211
  Serious: Yes (Hospitalization)
  Sender: FDA-Public Use
  Company Number: 2003188595CA

PATIENT
  Age: 37 Year
  Sex: Female

DRUGS (7)
  1. DELTASONE [Suspect]
     Dates: start: 20010101
  2. METHOTREXATE [Suspect]
     Dates: start: 20010101, end: 20030429
  3. KINERET [Suspect]
     Indication: RHEUMATOID ARTHRITIS
     Dosage: 100 MG, QD, SUBCUTANEOUS
     Route: 058
     Dates: start: 20021111, end: 20030429
  4. ALENDRONATE SODIUM [Concomitant]
  5. CALCIUM [Concomitant]
  6. PAROXETINE HCL [Concomitant]
  7. ACETAMINOPHEN [Concomitant]

REACTIONS (6)
  - ARTHRITIS [None]
  - CONDITION AGGRAVATED [None]
  - ERYSIPELAS [None]
  - HERPES ZOSTER [None]
  - IMMUNODEFICIENCY [None]
  - PHARYNGITIS STREPTOCOCCAL [None]
